FAERS Safety Report 20669768 (Version 24)
Quarter: 2025Q3

REPORT INFORMATION
  Report Type: Report from Study
  Country: EU (occurrence: EU)
  Receive Date: 20220404
  Receipt Date: 20250818
  Transmission Date: 20251020
  Serious: Yes (Life-Threatening, Hospitalization, Other)
  Sender: PFIZER
  Company Number: EU-ROCHE-3009750

PATIENT
  Age: 47 Year
  Sex: Female
  Weight: 60 kg

DRUGS (103)
  1. CARBOPLATIN [Suspect]
     Active Substance: CARBOPLATIN
     Indication: Small cell lung cancer extensive stage
     Route: 065
     Dates: start: 20211227
  2. CARBOPLATIN [Suspect]
     Active Substance: CARBOPLATIN
     Indication: Lung cancer metastatic
  3. ETOPOSIDE [Suspect]
     Active Substance: ETOPOSIDE
     Indication: Small cell lung cancer extensive stage
     Route: 042
     Dates: start: 20211227
  4. ETOPOSIDE [Suspect]
     Active Substance: ETOPOSIDE
     Indication: Lung cancer metastatic
  5. ATEZOLIZUMAB [Suspect]
     Active Substance: ATEZOLIZUMAB
     Indication: Small cell lung cancer extensive stage
     Dosage: 1200 MG, EVERY 3 WEEKS
     Route: 042
     Dates: start: 20211227
  6. ATEZOLIZUMAB [Suspect]
     Active Substance: ATEZOLIZUMAB
     Indication: Lung cancer metastatic
     Dosage: 1200 MG, EVERY 3 WEEKS
     Route: 042
     Dates: start: 20220222
  7. ATEZOLIZUMAB [Suspect]
     Active Substance: ATEZOLIZUMAB
     Route: 042
     Dates: start: 20220628
  8. ATEZOLIZUMAB [Suspect]
     Active Substance: ATEZOLIZUMAB
     Route: 042
  9. ACETYLCYSTEINE [Concomitant]
     Active Substance: ACETYLCYSTEINE
     Dosage: UNK UNK, DAILY
     Dates: start: 20220115, end: 20220126
  10. AMOXICILLIN\CLAVULANATE POTASSIUM [Concomitant]
     Active Substance: AMOXICILLIN\CLAVULANATE POTASSIUM
     Dosage: UNK, 1X/DAY
     Dates: start: 20220121, end: 20220121
  11. AMOXICILLIN\CLAVULANATE POTASSIUM [Concomitant]
     Active Substance: AMOXICILLIN\CLAVULANATE POTASSIUM
     Dosage: UNK UNK, 3X/DAY
     Dates: start: 20220122, end: 20220130
  12. ATEZOLIZUMAB [Concomitant]
     Active Substance: ATEZOLIZUMAB
  13. CYANOCOBALAMIN\PYRIDOXINE\RIBOFLAVIN\THIAMINE [Concomitant]
     Active Substance: CYANOCOBALAMIN\PYRIDOXINE\RIBOFLAVIN\THIAMINE
     Dosage: UNK, DAILY
     Dates: start: 20220114, end: 20220223
  14. CYANOCOBALAMIN\PYRIDOXINE\RIBOFLAVIN\THIAMINE [Concomitant]
     Active Substance: CYANOCOBALAMIN\PYRIDOXINE\RIBOFLAVIN\THIAMINE
     Dosage: UNK
     Dates: start: 20220311, end: 20220708
  15. CARBOPLATIN [Concomitant]
     Active Substance: CARBOPLATIN
  16. ENOXAPARIN SODIUM [Concomitant]
     Active Substance: ENOXAPARIN SODIUM
     Dosage: UNK UNK, 1X/DAY
     Dates: start: 20220917, end: 20220920
  17. ENOXAPARIN SODIUM [Concomitant]
     Active Substance: ENOXAPARIN SODIUM
     Dosage: UNK, 1X/DAY
     Dates: start: 20220110, end: 20220127
  18. ENOXAPARIN SODIUM [Concomitant]
     Active Substance: ENOXAPARIN SODIUM
     Dates: start: 20221103
  19. CEFUROXIME [Concomitant]
     Active Substance: CEFUROXIME
     Dosage: UNK, 3X/DAY
     Dates: start: 20220314, end: 20220317
  20. CIPROFLOXACIN [Concomitant]
     Active Substance: CIPROFLOXACIN
     Dosage: UNK, 2X/DAY
     Dates: start: 20220318, end: 20220330
  21. FENOTEROL HYDROBROMIDE [Concomitant]
     Active Substance: FENOTEROL HYDROBROMIDE
     Indication: Premedication
  22. FENOTEROL HYDROBROMIDE [Concomitant]
     Active Substance: FENOTEROL HYDROBROMIDE
     Dates: start: 20220823
  23. FENOTEROL HYDROBROMIDE [Concomitant]
     Active Substance: FENOTEROL HYDROBROMIDE
     Dates: start: 20221027, end: 20221103
  24. FENOTEROL HYDROBROMIDE [Concomitant]
     Active Substance: FENOTEROL HYDROBROMIDE
     Dates: start: 20221026, end: 20221026
  25. DEXAMETHASONE [Concomitant]
     Active Substance: DEXAMETHASONE
     Indication: Premedication
     Dates: start: 20211227, end: 20211227
  26. DEXAMETHASONE [Concomitant]
     Active Substance: DEXAMETHASONE
     Dates: start: 20220126, end: 20220126
  27. DEXAMETHASONE [Concomitant]
     Active Substance: DEXAMETHASONE
     Dates: start: 20220222, end: 20220222
  28. DEXAMETHASONE [Concomitant]
     Active Substance: DEXAMETHASONE
     Dates: start: 20220222, end: 20220222
  29. DEXAMETHASONE [Concomitant]
     Active Substance: DEXAMETHASONE
     Dates: start: 20220329, end: 20220329
  30. DEXAMETHASONE [Concomitant]
     Active Substance: DEXAMETHASONE
     Dates: start: 20220329, end: 20220329
  31. DEXAMETHASONE [Concomitant]
     Active Substance: DEXAMETHASONE
     Dates: start: 20220823
  32. DAFALGAN [Concomitant]
     Active Substance: ACETAMINOPHEN
     Dosage: UNK UNK, 4X/DAY
     Dates: start: 20211215, end: 20220426
  33. DAFALGAN [Concomitant]
     Active Substance: ACETAMINOPHEN
     Dates: start: 20220708
  34. DIAZEPAM [Concomitant]
     Active Substance: DIAZEPAM
     Indication: Alcohol withdrawal syndrome
     Route: 065
     Dates: start: 20220110, end: 20220121
  35. DIAZEPAM [Concomitant]
     Active Substance: DIAZEPAM
     Dates: start: 20220308, end: 20220312
  36. ELIQUIS [Concomitant]
     Active Substance: APIXABAN
     Dosage: UNK, 2X/DAY
     Dates: start: 20220708, end: 20220715
  37. ELIQUIS [Concomitant]
     Active Substance: APIXABAN
     Dosage: UNK, 2X/DAY
     Dates: start: 20220716, end: 20220916
  38. POTASSIUM CHLORIDE [Concomitant]
     Active Substance: POTASSIUM CHLORIDE
     Dosage: UNK, 3X/DAY
     Dates: start: 20220111, end: 20220114
  39. POTASSIUM CHLORIDE [Concomitant]
     Active Substance: POTASSIUM CHLORIDE
     Dosage: UNK
     Dates: start: 20220312, end: 20220317
  40. KCL [Concomitant]
     Active Substance: POTASSIUM CHLORIDE
     Dates: start: 20220309, end: 20220316
  41. ALIZAPRIDE HYDROCHLORIDE [Concomitant]
     Active Substance: ALIZAPRIDE HYDROCHLORIDE
     Dates: start: 20220918
  42. ALIZAPRIDE HYDROCHLORIDE [Concomitant]
     Active Substance: ALIZAPRIDE HYDROCHLORIDE
     Dates: start: 20220112, end: 20220121
  43. ALIZAPRIDE HYDROCHLORIDE [Concomitant]
     Active Substance: ALIZAPRIDE HYDROCHLORIDE
     Dates: start: 20220122, end: 20220329
  44. MAGNESIUM [Concomitant]
     Active Substance: MAGNESIUM
     Dosage: UNK UNK, 2X/DAY
     Dates: start: 20220114, end: 20220119
  45. MAGNESIUM [Concomitant]
     Active Substance: MAGNESIUM
     Dosage: UNK, DAILY
     Dates: start: 20220314, end: 20220708
  46. MEDROL [Concomitant]
     Active Substance: METHYLPREDNISOLONE
     Dates: start: 20220817
  47. MOVICOL [Concomitant]
     Active Substance: POLYETHYLENE GLYCOL 3350\POTASSIUM CHLORIDE\SODIUM BICARBONATE\SODIUM CHLORIDE
     Dates: start: 20220115, end: 20220223
  48. MOVICOL [Concomitant]
     Active Substance: POLYETHYLENE GLYCOL 3350\POTASSIUM CHLORIDE\SODIUM BICARBONATE\SODIUM CHLORIDE
     Dosage: UNK, 1X/DAY
     Dates: start: 20220310, end: 20220317
  49. MOTILIUM [Concomitant]
     Active Substance: DOMPERIDONE
     Dates: start: 20220329, end: 20220426
  50. NETUPITANT [Concomitant]
     Active Substance: NETUPITANT
     Indication: Premedication
     Dates: start: 20211227, end: 20211227
  51. NETUPITANT [Concomitant]
     Active Substance: NETUPITANT
     Dates: start: 20220126, end: 20220126
  52. NETUPITANT [Concomitant]
     Active Substance: NETUPITANT
     Dates: start: 20220222, end: 20220222
  53. NETUPITANT [Concomitant]
     Active Substance: NETUPITANT
     Dates: start: 20220329, end: 20220329
  54. NETUPITANT [Concomitant]
     Active Substance: NETUPITANT
     Dates: start: 20220823
  55. NICOTINELL [Concomitant]
     Active Substance: NICOTINE
     Dosage: UNK, 1X/DAY
     Dates: start: 20220110, end: 20220128
  56. NICOTINELL [Concomitant]
     Active Substance: NICOTINE
     Dosage: UNK, 1X/DAY
     Dates: start: 20220312, end: 20220426
  57. INDACATEROL [Concomitant]
     Active Substance: INDACATEROL
     Dosage: UNK, 1X/DAY
     Dates: start: 20211215, end: 20221026
  58. INDACATEROL [Concomitant]
     Active Substance: INDACATEROL
     Dates: start: 20221027, end: 20221103
  59. OXYCONTIN [Concomitant]
     Active Substance: OXYCODONE HYDROCHLORIDE
     Dosage: UNK UNK, 2X/DAY
     Dates: start: 20211227, end: 20220223
  60. OXYCONTIN [Concomitant]
     Active Substance: OXYCODONE HYDROCHLORIDE
     Dosage: UNK
     Dates: start: 20220310, end: 20220329
  61. OXYCODONE HYDROCHLORIDE [Concomitant]
     Active Substance: OXYCODONE HYDROCHLORIDE
     Dates: start: 20211227, end: 20220223
  62. PALONOSETRON [Concomitant]
     Active Substance: PALONOSETRON
     Dates: start: 20211227, end: 20211227
  63. PALONOSETRON [Concomitant]
     Active Substance: PALONOSETRON
     Dates: start: 20220126, end: 20220126
  64. PALONOSETRON [Concomitant]
     Active Substance: PALONOSETRON
     Dates: start: 20220222, end: 20220222
  65. PALONOSETRON [Concomitant]
     Active Substance: PALONOSETRON
     Dates: start: 20220329, end: 20220329
  66. PALONOSETRON [Concomitant]
     Active Substance: PALONOSETRON
     Dates: start: 20220823
  67. HUMAN RED BLOOD CELL [Concomitant]
     Active Substance: HUMAN RED BLOOD CELL
     Dosage: UNK UNK, DAILY
     Dates: start: 20220310, end: 20220310
  68. HUMAN RED BLOOD CELL [Concomitant]
     Active Substance: HUMAN RED BLOOD CELL
     Dosage: UNK UNK, 1X/DAY
     Dates: start: 20220311, end: 20220311
  69. VINCRISTINE [Concomitant]
     Active Substance: VINCRISTINE
     Dates: start: 20220823, end: 20221109
  70. CYCLOPHOSPHAMIDE [Concomitant]
     Active Substance: CYCLOPHOSPHAMIDE
  71. CYCLOPHOSPHAMIDE [Concomitant]
     Active Substance: CYCLOPHOSPHAMIDE
     Dates: start: 20220823, end: 20221109
  72. DOXORUBICIN [Concomitant]
     Active Substance: DOXORUBICIN
  73. DOXORUBICIN [Concomitant]
     Active Substance: DOXORUBICIN
     Dates: start: 20220823, end: 20221109
  74. BECLOMETHASONE DIPROPIONATE\FORMOTEROL FUMARATE\GLYCOPYRROLATE [Concomitant]
     Active Substance: BECLOMETHASONE DIPROPIONATE\FORMOTEROL FUMARATE\GLYCOPYRROLATE
     Dates: start: 20221108
  75. CIPROFLOXACIN [Concomitant]
     Active Substance: CIPROFLOXACIN
     Dates: start: 20220318, end: 20220330
  76. ALIZAPRIDE HYDROCHLORIDE [Concomitant]
     Active Substance: ALIZAPRIDE HYDROCHLORIDE
     Dates: start: 20220112, end: 20220121
  77. ALIZAPRIDE HYDROCHLORIDE [Concomitant]
     Active Substance: ALIZAPRIDE HYDROCHLORIDE
     Dates: start: 20220918
  78. ALIZAPRIDE HYDROCHLORIDE [Concomitant]
     Active Substance: ALIZAPRIDE HYDROCHLORIDE
     Dates: start: 20220122, end: 20220329
  79. ETOPOSIDE [Concomitant]
     Active Substance: ETOPOSIDE
  80. ALIZAPRIDE HYDROCHLORIDE [Concomitant]
     Active Substance: ALIZAPRIDE HYDROCHLORIDE
     Dates: start: 20220112, end: 20220121
  81. ALIZAPRIDE HYDROCHLORIDE [Concomitant]
     Active Substance: ALIZAPRIDE HYDROCHLORIDE
     Dates: start: 20220122, end: 20220329
  82. ALIZAPRIDE HYDROCHLORIDE [Concomitant]
     Active Substance: ALIZAPRIDE HYDROCHLORIDE
     Dates: start: 20220918
  83. NICOTINELL [Concomitant]
     Active Substance: NICOTINE
     Dates: start: 20220110, end: 20220128
  84. NICOTINELL [Concomitant]
     Active Substance: NICOTINE
     Dates: start: 20220312, end: 20220426
  85. BEFACT FORTE [Concomitant]
     Dates: start: 20220114, end: 20220223
  86. BEFACT FORTE [Concomitant]
     Dates: start: 20220311, end: 20220708
  87. MOVICOL [Concomitant]
     Active Substance: POLYETHYLENE GLYCOL 3350\POTASSIUM CHLORIDE\SODIUM BICARBONATE\SODIUM CHLORIDE
     Dates: start: 20220115, end: 20220223
  88. MOVICOL [Concomitant]
     Active Substance: POLYETHYLENE GLYCOL 3350\POTASSIUM CHLORIDE\SODIUM BICARBONATE\SODIUM CHLORIDE
     Dates: start: 20220310, end: 20220317
  89. MAGNETOP [Concomitant]
     Dates: start: 20220114, end: 20220119
  90. MAGNETOP [Concomitant]
     Dates: start: 20220314, end: 20220708
  91. AMOXICILLIN\CLAVULANATE POTASSIUM [Concomitant]
     Active Substance: AMOXICILLIN\CLAVULANATE POTASSIUM
     Dates: start: 20220121, end: 20220121
  92. AMOXICILLIN\CLAVULANATE POTASSIUM [Concomitant]
     Active Substance: AMOXICILLIN\CLAVULANATE POTASSIUM
     Dates: start: 20220122, end: 20220130
  93. KALIUM RETARD [Concomitant]
     Dates: start: 20220111, end: 20220114
  94. KALIUM RETARD [Concomitant]
     Dates: start: 20220312, end: 20220317
  95. CIPROFLOXACIN [Concomitant]
     Active Substance: CIPROFLOXACIN
     Dates: start: 20220318, end: 20220330
  96. RBC TRANSFUSION [Concomitant]
     Dates: start: 20220310, end: 20220310
  97. RBC TRANSFUSION [Concomitant]
     Dates: start: 20220311, end: 20220311
  98. MOTILIUM [Concomitant]
     Active Substance: DOMPERIDONE
     Dates: start: 20220329, end: 20220426
  99. CIPROFLOXACIN [Concomitant]
     Active Substance: CIPROFLOXACIN
     Dates: start: 20220318, end: 20220330
  100. MEDROL [Concomitant]
     Active Substance: METHYLPREDNISOLONE
     Dates: start: 20220817
  101. VINCRISTINE [Concomitant]
     Active Substance: VINCRISTINE
     Dates: start: 20220823, end: 20221109
  102. DOXORUBICIN [Concomitant]
     Active Substance: DOXORUBICIN
     Dates: start: 20220823, end: 20221109
  103. CYCLOPHOSPHAMIDE [Concomitant]
     Active Substance: CYCLOPHOSPHAMIDE
     Dates: start: 20220823, end: 20221109

REACTIONS (37)
  - Febrile neutropenia [Recovered/Resolved]
  - Pyelonephritis [Recovered/Resolved]
  - COVID-19 [Recovered/Resolved]
  - Dizziness [Not Recovered/Not Resolved]
  - Chronic obstructive pulmonary disease [Not Recovered/Not Resolved]
  - Hypokalaemia [Recovered/Resolved]
  - Hypokalaemia [Not Recovered/Not Resolved]
  - Pulmonary embolism [Not Recovered/Not Resolved]
  - Platelet count decreased [Recovered/Resolved]
  - Hypomagnesaemia [Recovered/Resolved]
  - Nausea [Not Recovered/Not Resolved]
  - Constipation [Recovered/Resolved]
  - Anaemia [Recovered/Resolved]
  - Muscle spasms [Recovered/Resolved]
  - Hypoalbuminaemia [Recovered/Resolved]
  - Blood alkaline phosphatase increased [Recovered/Resolved]
  - Aspartate aminotransferase increased [Recovered/Resolved]
  - Diarrhoea [Recovered/Resolved]
  - Alcohol withdrawal syndrome [Recovered/Resolved]
  - Abdominal pain upper [Recovered/Resolved]
  - Hypotension [Recovered/Resolved]
  - Headache [Recovered/Resolved]
  - Visual field defect [Recovered/Resolved]
  - Pain in extremity [Recovered/Resolved]
  - Mean cell volume increased [Recovered/Resolved]
  - Back pain [Not Recovered/Not Resolved]
  - Neutrophil count increased [Not Recovered/Not Resolved]
  - Blood alkaline phosphatase decreased [Not Recovered/Not Resolved]
  - Basophil count decreased [Not Recovered/Not Resolved]
  - Lymphocyte count decreased [Not Recovered/Not Resolved]
  - Migraine [Not Recovered/Not Resolved]
  - Eosinophil count decreased [Not Recovered/Not Resolved]
  - Mean platelet volume decreased [Not Recovered/Not Resolved]
  - Hyponatraemia [Not Recovered/Not Resolved]
  - Inflammation [Recovered/Resolved]
  - Anaemia macrocytic [Not Recovered/Not Resolved]
  - Blood lactate dehydrogenase increased [Not Recovered/Not Resolved]

NARRATIVE: CASE EVENT DATE: 20220109
